FAERS Safety Report 5931604-2 (Version None)
Quarter: 2008Q4

REPORT INFORMATION
  Report Type: 
  Country: None (occurrence: None)
  Receive Date: 20081027
  Receipt Date: 20081014
  Transmission Date: 20090506
  Serious: Yes (Other)
  Sender: FDA-Public Use
  Company Number: FR-ELI_LILLY_AND_COMPANY-FR200807006388

PATIENT
  Age: 60 Year
  Sex: Female
  Weight: 56 kg

DRUGS (9)
  1. FORTEO [Suspect]
     Indication: OSTEOPOROTIC FRACTURE
     Dosage: 20 UG, DAILY (1/D)
     Route: 058
     Dates: start: 20080223, end: 20080815
  2. IDEOS [Concomitant]
     Dosage: UNK, UNKNOWN
     Route: 048
     Dates: start: 19930101
  3. OMEPRAZOLE [Concomitant]
     Dosage: 20 MG, DAILY (1/D)
     Route: 048
     Dates: start: 19930101
  4. MEDROL [Concomitant]
     Indication: ASTHMA
     Dosage: 16 MG, DAILY (1/D)
     Route: 048
     Dates: start: 19930101
  5. THEOSTAT [Concomitant]
     Indication: ASTHMA
     Dosage: 300 MG, DAILY (1/D)
     Route: 048
     Dates: start: 19930101
  6. ZADITEN [Concomitant]
     Indication: ASTHMA
     Dosage: 400 MG, DAILY (1/D)
     Route: 048
     Dates: start: 19930101
  7. FORADIL [Concomitant]
     Indication: ASTHMA
     Dosage: UNK, UNKNOWN
     Route: 055
     Dates: start: 19930101
  8. FLUTICASONE PROPIONATE [Concomitant]
     Indication: ASTHMA
     Dosage: UNK, UNKNOWN
     Route: 065
     Dates: start: 19930101
  9. TOPALGIC [Concomitant]
     Indication: PAIN
     Dosage: 100 MG, DAILY (1/D)
     Route: 048
     Dates: start: 20030101

REACTIONS (1)
  - EMPHYSEMA [None]
